FAERS Safety Report 17129974 (Version 2)
Quarter: 2019Q4

REPORT INFORMATION
  Report Type: Spontaneous
  Country: IT (occurrence: IT)
  Receive Date: 20191209
  Receipt Date: 20191224
  Transmission Date: 20200122
  Serious: Yes (Hospitalization, Other)
  Sender: FDA-Public Use
  Company Number: IT-PFIZER INC-2019525678

PATIENT
  Age: 50 Year
  Sex: Female

DRUGS (6)
  1. TRITTICO [Concomitant]
     Active Substance: TRAZODONE HYDROCHLORIDE
     Dosage: UNK
     Dates: start: 20161114, end: 20191111
  2. LORAZEPAM. [Suspect]
     Active Substance: LORAZEPAM
     Dosage: 35 MG, SINGLE
     Route: 048
     Dates: start: 20191111, end: 20191111
  3. SERTRALINE HCL [Suspect]
     Active Substance: SERTRALINE HYDROCHLORIDE
     Dosage: 1500 MG, SINGLE
     Route: 048
     Dates: start: 20191111, end: 20191111
  4. MODALINA [Concomitant]
     Active Substance: TRIFLUOPERAZINE HYDROCHLORIDE
     Dosage: UNK
     Dates: start: 20190508, end: 20191111
  5. FELISON [Suspect]
     Active Substance: FLURAZEPAM MONOHYDROCHLORIDE
     Dosage: 6 MG, SINGLE
     Route: 048
     Dates: start: 20191111, end: 20191111
  6. TACHIPIRINA [Suspect]
     Active Substance: ACETAMINOPHEN
     Dosage: 8000 MG, SINGLE
     Route: 048
     Dates: start: 20191111, end: 20191111

REACTIONS (3)
  - Suicide attempt [Recovered/Resolved]
  - Intentional overdose [Unknown]
  - Drug abuse [Recovered/Resolved]

NARRATIVE: CASE EVENT DATE: 20191111
